FAERS Safety Report 6367697-0 (Version None)
Quarter: 2009Q3

REPORT INFORMATION
  Report Type: 
  Country: None (occurrence: None)
  Receive Date: 20090921
  Receipt Date: 20090910
  Transmission Date: 20100115
  Serious: Yes (Death, Other)
  Sender: FDA-Public Use
  Company Number: US-BAXTER-2009BH013649

PATIENT
  Age: 53 Year
  Sex: Male
  Weight: 86 kg

DRUGS (21)
  1. HEPARIN SODIUM INJECTION [Suspect]
     Indication: DRUG USE FOR UNKNOWN INDICATION
     Route: 065
     Dates: start: 20070525, end: 20070525
  2. HEPARIN SODIUM INJECTION [Suspect]
     Route: 065
     Dates: start: 20070525, end: 20070525
  3. HEPARIN SODIUM INJECTION [Suspect]
     Route: 041
     Dates: start: 20070531, end: 20070531
  4. HEPARIN SODIUM INJECTION [Suspect]
     Route: 040
     Dates: start: 20070525, end: 20070525
  5. HEPARIN SODIUM INJECTION [Suspect]
     Route: 014
     Dates: start: 20070531, end: 20070531
  6. HEPARIN SODIUM INJECTION [Suspect]
     Route: 042
     Dates: start: 20070525, end: 20070525
  7. HEPARIN SODIUM INJECTION [Suspect]
     Route: 042
     Dates: start: 20070531, end: 20070531
  8. HEPARIN SODIUM INJECTION [Suspect]
     Route: 042
     Dates: start: 20070525, end: 20070525
  9. HEPARIN SODIUM INJECTION [Suspect]
     Route: 042
     Dates: start: 20070531, end: 20070531
  10. HEPARIN SODIUM INJECTION [Suspect]
     Route: 041
     Dates: start: 20070525, end: 20070525
  11. HEPARIN SODIUM INJECTION [Suspect]
     Route: 042
     Dates: start: 20070531, end: 20070531
  12. HEPARIN SODIUM INJECTION [Suspect]
     Route: 042
     Dates: start: 20070531, end: 20070531
  13. HYZAAR [Concomitant]
     Indication: DRUG USE FOR UNKNOWN INDICATION
     Route: 065
  14. PHENYTOIN [Concomitant]
     Indication: DRUG USE FOR UNKNOWN INDICATION
     Route: 065
  15. PLAVIX [Concomitant]
     Indication: DRUG USE FOR UNKNOWN INDICATION
     Route: 065
  16. LOPRESSOR [Concomitant]
     Indication: DRUG USE FOR UNKNOWN INDICATION
     Route: 065
  17. LIPITOR [Concomitant]
     Indication: DRUG USE FOR UNKNOWN INDICATION
     Route: 065
  18. NATURES OWN REFLUX FREE OMEGA-3 FISH OIL [Concomitant]
     Indication: DRUG USE FOR UNKNOWN INDICATION
     Route: 065
  19. ASPIRIN [Concomitant]
     Indication: DRUG USE FOR UNKNOWN INDICATION
     Route: 065
  20. LOVENOX [Concomitant]
     Indication: DRUG USE FOR UNKNOWN INDICATION
     Route: 065
  21. COLACE [Concomitant]
     Indication: DRUG USE FOR UNKNOWN INDICATION
     Route: 065

REACTIONS (6)
  - CARDIO-RESPIRATORY ARREST [None]
  - CORONARY ARTERY DISEASE [None]
  - HYPERLIPIDAEMIA [None]
  - HYPOTENSION [None]
  - MYOCARDIAL INFARCTION [None]
  - UNRESPONSIVE TO STIMULI [None]
